FAERS Safety Report 9870627 (Version 1)
Quarter: 2014Q1

REPORT INFORMATION
  Report Type: Spontaneous
  Country: US (occurrence: US)
  Receive Date: 20140205
  Receipt Date: 20140205
  Transmission Date: 20141002
  Serious: Yes (Death, Hospitalization, Other)
  Sender: FDA-Public Use
  Company Number: US-GILEAD-2014-0093635

PATIENT
  Age: 55 Year
  Sex: Female

DRUGS (2)
  1. LETAIRIS [Suspect]
     Indication: PULMONARY ARTERIAL HYPERTENSION
     Dosage: 10 MG, QD
     Route: 048
     Dates: start: 201308, end: 201401
  2. LETAIRIS [Suspect]
     Dosage: 5 MG, QD
     Route: 048
     Dates: start: 201304, end: 201308

REACTIONS (16)
  - Death [Fatal]
  - Sepsis [Unknown]
  - Pneumonia [Unknown]
  - Clostridium difficile colitis [Unknown]
  - Renal failure acute [Unknown]
  - Acute respiratory failure [Unknown]
  - Cardio-respiratory arrest [Unknown]
  - Cardiac failure congestive [Unknown]
  - Hyperkalaemia [Unknown]
  - Diarrhoea [Unknown]
  - Anuria [Unknown]
  - Metabolic acidosis [Unknown]
  - Hypotension [Unknown]
  - Hypoxia [Unknown]
  - Blood lactic acid increased [Unknown]
  - Abdominal pain [Unknown]
